FAERS Safety Report 7418050-X (Version None)
Quarter: 2011Q2

REPORT INFORMATION
  Report Type: 
  Country: None (occurrence: None)
  Receive Date: 20110415
  Receipt Date: 20110405
  Transmission Date: 20111010
  Serious: Yes (Death, Other)
  Sender: FDA-Public Use
  Company Number: US-ROCHE-770868

PATIENT
  Sex: Female
  Weight: 158.8 kg

DRUGS (1)
  1. HERCEPTIN [Suspect]
     Dosage: FREQUENCY: EVERY WEEK.
     Route: 042
     Dates: start: 20110330

REACTIONS (7)
  - DYSSTASIA [None]
  - SOMNOLENCE [None]
  - DEATH [None]
  - COMA [None]
  - FALL [None]
  - CHILLS [None]
  - NAUSEA [None]
